FAERS Safety Report 9760412 (Version 1)
Quarter: 2013Q4

REPORT INFORMATION
  Report Type: Spontaneous
  Country: US (occurrence: US)
  Receive Date: 20131216
  Receipt Date: 20131216
  Transmission Date: 20140711
  Serious: No
  Sender: FDA-Public Use
  Company Number: US-PFIZER INC-2013358675

PATIENT
  Age: 67 Year
  Sex: Female
  Weight: 74.83 kg

DRUGS (10)
  1. XELJANZ [Suspect]
     Indication: RHEUMATOID ARTHRITIS
     Dosage: 5 MG, 2X/DAY
     Route: 048
  2. TOPROL XL [Concomitant]
     Dosage: 25 MG
  3. PANTOPRAZOLE [Concomitant]
     Dosage: 20 MG
  4. METHOTREXATE [Concomitant]
     Dosage: 2.5 MG
  5. METFORMIN [Concomitant]
     Dosage: 500 MG
  6. SIMVASTATIN [Concomitant]
     Dosage: 10 MG
  7. LOSARTAN/HCT [Concomitant]
     Dosage: 50-12.5 (UNIT NOT PROVIDED)
  8. B COMPLEX [Concomitant]
     Dosage: UNK
  9. CALCIUM [Concomitant]
     Dosage: 500 (UNIT NOT PROVIDED)
  10. VITAMIN D3 [Concomitant]
     Dosage: 10000 IU

REACTIONS (5)
  - Cough [Recovering/Resolving]
  - Nasopharyngitis [Recovering/Resolving]
  - Gastrooesophageal reflux disease [Recovering/Resolving]
  - Gastroenteritis viral [Recovered/Resolved]
  - Vomiting [Recovered/Resolved]
